FAERS Safety Report 26136696 (Version 1)
Quarter: 2025Q4

REPORT INFORMATION
  Report Type: Spontaneous
  Country: US (occurrence: None)
  Receive Date: 20251209
  Receipt Date: 20251209
  Transmission Date: 20260118
  Serious: Yes (Other)
  Sender: FDA-CTU
  Company Number: None

PATIENT
  Age: 72 Year
  Sex: Female
  Weight: 95.85 kg

DRUGS (6)
  1. METOPROLOL SUCCINATE [Suspect]
     Active Substance: METOPROLOL SUCCINATE
     Indication: Cardiac disorder
     Dosage: OTHER QUANTITY : 1 TABLET(S);?FREQUENCY : AT BEDTIME;?OTHER ROUTE : BY MOUTH WITH WATER;
     Route: 050
     Dates: start: 20250601
  2. METOPROLOL [Concomitant]
     Active Substance: METOPROLOL
  3. ASPIRIN [Concomitant]
     Active Substance: ASPIRIN
  4. HERBALS\TURMERIC [Concomitant]
     Active Substance: HERBALS\TURMERIC
  5. beet chews [Concomitant]
  6. Beat juice [Concomitant]

REACTIONS (5)
  - Fatigue [None]
  - Anxiety [None]
  - Loss of personal independence in daily activities [None]
  - Arthralgia [None]
  - Weight increased [None]

NARRATIVE: CASE EVENT DATE: 20251207
